FAERS Safety Report 7535492-2 (Version None)
Quarter: 2011Q2

REPORT INFORMATION
  Report Type: 
  Country: None (occurrence: None)
  Receive Date: 20110601
  Receipt Date: 20110523
  Transmission Date: 20111010
  Serious: Yes (Other)
  Sender: FDA-Public Use
  Company Number: 2011SP018068

PATIENT
  Sex: Male

DRUGS (12)
  1. IRBESARTAN [Concomitant]
  2. MST /00036302/ [Concomitant]
  3. TRAMADOL HCL [Concomitant]
  4. ATENOLOL [Concomitant]
  5. ENALAPRIL MALEATE [Concomitant]
  6. MOXONIDINE [Concomitant]
  7. DEXAMETHASONE [Suspect]
     Indication: PRODUCT USED FOR UNKNOWN INDICATION
     Dosage: 0.5 MG;BID
     Dates: start: 20040101, end: 20040501
  8. SODIUM DICLOFENAC [Concomitant]
  9. SERTRALINE HYDROCHLORIDE [Concomitant]
  10. ASPIRIN [Concomitant]
  11. SIMVASTATIN [Concomitant]
  12. OMEPRAZOLE [Concomitant]

REACTIONS (15)
  - FEELING ABNORMAL [None]
  - LOSS OF LIBIDO [None]
  - SUICIDAL IDEATION [None]
  - HYPOGONADISM [None]
  - DECREASED INTEREST [None]
  - EPISTAXIS [None]
  - ADRENAL INSUFFICIENCY [None]
  - BLOOD TESTOSTERONE DECREASED [None]
  - BLOOD LUTEINISING HORMONE DECREASED [None]
  - ANDROGENS DECREASED [None]
  - HYPERTENSION [None]
  - DEPRESSION [None]
  - MARITAL PROBLEM [None]
  - FAT TISSUE INCREASED [None]
  - BLOOD CORTISOL DECREASED [None]
